FAERS Safety Report 10037272 (Version 1)
Quarter: 2014Q1

REPORT INFORMATION
  Report Type: Spontaneous
  Country: US (occurrence: None)
  Receive Date: 20140306
  Receipt Date: 20140306
  Transmission Date: 20141002
  Serious: Yes (Hospitalization, Other)
  Sender: FDA-Public Use
  Company Number: 163-21880-13083545

PATIENT
  Age: 66 Year
  Sex: Male

DRUGS (8)
  1. REVLIMID (LENALIDOMIDE) (25 MILLIGRAM, CAPSULES) [Suspect]
     Indication: PLASMA CELL MYELOMA
     Dosage: 25 MG, 21 IN 21 D, PO
     Route: 048
     Dates: start: 20130806
  2. ALLEGRA ALLERGY (FEXOFENADINE HYDROCHLORIDE) [Concomitant]
  3. ALLOPURINOL (ALLOPURINOL) [Concomitant]
  4. ALOXI (PALONOSETRON HYDROCHLORIDE) [Concomitant]
  5. AMLODIPINE BESYLATE (AMLODIPINE BESILATE) [Concomitant]
  6. DECADRON (DEXAMETHASONE) (DEXAMETHASONE) [Concomitant]
  7. HYDROCHLOROTHIAZIDE (HYDROCHLOROTHIAZIDE) [Concomitant]
  8. LISINOPRIL (LISINOPRIL) [Concomitant]

REACTIONS (1)
  - Diverticulitis [None]
